FAERS Safety Report 8698963 (Version 5)
Quarter: 2012Q4

REPORT INFORMATION
  Report Type: Report from Study
  Country: US (occurrence: US)
  Receive Date: 20120802
  Receipt Date: 20121120
  Transmission Date: 20130627
  Serious: Yes (Hospitalization, Other)
  Sender: FDA-Public Use
  Company Number: US-ROCHE-1094609

PATIENT
  Age: 58 Year
  Sex: Female

DRUGS (4)
  1. PEG-INTERFERON ALFA 2A [Suspect]
     Indication: CHRONIC HEPATITIS C
     Route: 058
     Dates: start: 20120628
  2. RIBASPHERE [Suspect]
     Indication: CHRONIC HEPATITIS C
     Dosage: divided doses of 600 and 400 mg
     Route: 048
     Dates: start: 20120628
  3. TELAPREVIR [Suspect]
     Indication: CHRONIC HEPATITIS C
     Route: 065
     Dates: start: 20120628, end: 20120810
  4. ATIVAN [Concomitant]
     Indication: INSOMNIA
     Route: 065

REACTIONS (8)
  - Chest discomfort [Recovered/Resolved]
  - Insomnia [Unknown]
  - Anxiety [Unknown]
  - Cardiac arrest [Unknown]
  - Cardiac pacemaker insertion [Unknown]
  - Cardiac disorder [Unknown]
  - White blood cell count decreased [Unknown]
  - Emphysema [Unknown]
